FAERS Safety Report 9028997 (Version 1)
Quarter: 2013Q1

REPORT INFORMATION
  Report Type: Spontaneous
  Country: MX (occurrence: MX)
  Receive Date: 20130123
  Receipt Date: 20130123
  Transmission Date: 20140127
  Serious: Yes (Death)
  Sender: FDA-Public Use
  Company Number: PHHY2013MX005960

PATIENT
  Sex: Female

DRUGS (1)
  1. EXFORGE HCT [Suspect]
     Indication: HYPERTENSION
     Dosage: 1 DF (320 MG VALS, 10 MG AMLO AND 25 MG HYDROCHLOROTHIAZIDE), DAILY
     Route: 048
     Dates: start: 2011

REACTIONS (1)
  - Infarction [Fatal]
